FAERS Safety Report 16920180 (Version 1)
Quarter: 2019Q4

REPORT INFORMATION
  Report Type: Spontaneous
  Country: IT (occurrence: IT)
  Receive Date: 20191015
  Receipt Date: 20191015
  Transmission Date: 20200122
  Serious: Yes (Life-Threatening, Hospitalization)
  Sender: FDA-Public Use
  Company Number: NVSC2019IT000633

PATIENT
  Age: 18 Year
  Sex: Female

DRUGS (4)
  1. CYCLOSPORIN [Concomitant]
     Active Substance: CYCLOSPORINE
     Indication: IMMUNOSUPPRESSION
     Route: 065
  2. CYCLOSPORIN [Concomitant]
     Active Substance: CYCLOSPORINE
     Indication: RENAL TRANSPLANT
  3. EVEROLIMUS. [Suspect]
     Active Substance: EVEROLIMUS
     Indication: IMMUNOSUPPRESSION
     Route: 065
  4. EVEROLIMUS. [Suspect]
     Active Substance: EVEROLIMUS
     Indication: RENAL TRANSPLANT

REACTIONS (9)
  - Haemoptysis [Unknown]
  - Chest pain [Unknown]
  - Renal failure [Unknown]
  - Pneumonitis [Unknown]
  - Pleural effusion [Unknown]
  - Respiratory failure [Unknown]
  - Condition aggravated [Unknown]
  - Cough [Unknown]
  - Malaise [Unknown]
